FAERS Safety Report 4899038-X (Version None)
Quarter: 2006Q1

REPORT INFORMATION
  Report Type: 
  Country: None (occurrence: None)
  Receive Date: 20060202
  Receipt Date: 20060123
  Transmission Date: 20060701
  Serious: Yes (Death)
  Sender: FDA-Public Use
  Company Number: US-BRISTOL-MYERS SQUIBB COMPANY-13256383

PATIENT
  Age: 56 Year
  Sex: Male
  Weight: 82 kg

DRUGS (1)
  1. ABILIFY [Suspect]
     Indication: SCHIZOPHRENIA, PARANOID TYPE
     Dosage: DOSAGE: 15 MG DAILY, THEN REDUCED TO 10 MG DAILY FOR 3 TO 4 MONTHS DURATION: 6 TO 12 MONTHS
     Route: 048

REACTIONS (2)
  - CARDIAC DISORDER [None]
  - SOMNOLENCE [None]
